FAERS Safety Report 4587420-X (Version None)
Quarter: 2005Q1

REPORT INFORMATION
  Report Type: 
  Country: None (occurrence: None)
  Receive Date: 20050218
  Receipt Date: 20050210
  Transmission Date: 20050727
  Serious: Yes (Hospitalization)
  Sender: FDA-Public Use
  Company Number: US-ABBOTT-05P-163-0290874-00

PATIENT

DRUGS (2)
  1. TARKA [Suspect]
     Indication: DRUG USE FOR UNKNOWN INDICATION
  2. DIABETES MEDICATION [Concomitant]
     Indication: DRUG USE FOR UNKNOWN INDICATION

REACTIONS (2)
  - ATRIOVENTRICULAR BLOCK [None]
  - SICK SINUS SYNDROME [None]
